FAERS Safety Report 19911538 (Version 1)
Quarter: 2021Q4

REPORT INFORMATION
  Report Type: Spontaneous
  Country: US (occurrence: US)
  Receive Date: 20211001
  Receipt Date: 20211001
  Transmission Date: 20220304
  Serious: Yes (Other)
  Sender: FDA-Public Use
  Company Number: None

PATIENT
  Age: 51 Year
  Sex: Female
  Weight: 81 kg

DRUGS (1)
  1. HUMIRA [Suspect]
     Active Substance: ADALIMUMAB
     Indication: Ankylosing spondylitis
     Dosage: ?          OTHER FREQUENCY:BIWEEKLY;
     Route: 058
     Dates: start: 20181101, end: 20201101

REACTIONS (14)
  - Blood glucose increased [None]
  - Hypertension [None]
  - Ankylosing spondylitis [None]
  - Condition aggravated [None]
  - Weight increased [None]
  - Diabetes mellitus [None]
  - Neuropathy peripheral [None]
  - Cardiac disorder [None]
  - Renal disorder [None]
  - Blindness [None]
  - Pain [None]
  - Arthralgia [None]
  - Musculoskeletal stiffness [None]
  - Joint stiffness [None]
